FAERS Safety Report 23867218 (Version 1)
Quarter: 2024Q2

REPORT INFORMATION
  Report Type: Spontaneous
  Country: CN (occurrence: None)
  Receive Date: 20240517
  Receipt Date: 20240517
  Transmission Date: 20240716
  Serious: Yes (Other)
  Sender: FDA-Public Use
  Company Number: 2024A113601

PATIENT
  Age: 19249 Day
  Sex: Female

DRUGS (1)
  1. OSIMERTINIB MESYLATE [Suspect]
     Active Substance: OSIMERTINIB MESYLATE
     Indication: Lung adenocarcinoma
     Route: 048
     Dates: start: 20240315, end: 20240324

REACTIONS (2)
  - Arrhythmia [Recovering/Resolving]
  - Muscle oedema [Recovering/Resolving]

NARRATIVE: CASE EVENT DATE: 20240320
